FAERS Safety Report 6804993-4 (Version None)
Quarter: 2010Q2

REPORT INFORMATION
  Report Type: 
  Country: None (occurrence: None)
  Receive Date: 20100628
  Receipt Date: 20070802
  Transmission Date: 20101027
  Serious: No
  Sender: FDA-Public Use
  Company Number: US-PFIZER INC-2007065084

PATIENT
  Sex: Female
  Weight: 51.71 kg

DRUGS (4)
  1. XALATAN [Suspect]
     Indication: GLAUCOMA
     Route: 031
     Dates: start: 20070529
  2. PHENOBARBITAL TAB [Suspect]
     Indication: PETIT MAL EPILEPSY
     Dates: start: 20070720, end: 20070725
  3. TEGRETOL [Concomitant]
  4. LAMICTAL [Concomitant]

REACTIONS (3)
  - ABDOMINAL PAIN UPPER [None]
  - RASH [None]
  - RASH PRURITIC [None]
